FAERS Safety Report 15928062 (Version 2)
Quarter: 2019Q1

REPORT INFORMATION
  Report Type: Spontaneous
  Country: US (occurrence: US)
  Receive Date: 20190206
  Receipt Date: 20190225
  Transmission Date: 20190417
  Serious: Yes (Hospitalization, Other)
  Sender: FDA-Public Use
  Company Number: US-TITAN PHARMACEUTICALS-2019TAN00003

PATIENT
  Age: 36 Year
  Sex: Male
  Weight: 67.12 kg

DRUGS (3)
  1. SUBOXONE [Concomitant]
     Active Substance: BUPRENORPHINE HYDROCHLORIDE\NALOXONE HYDROCHLORIDE
  2. PROBUPHINE [Suspect]
     Active Substance: BUPRENORPHINE HYDROCHLORIDE
     Indication: DRUG USE DISORDER
     Dosage: 4 DOSAGE UNITS (4 SUBDERMAL IMPLANTS), ONCE, IN THE ARM
     Route: 059
  3. PROBUPHINE [Suspect]
     Active Substance: BUPRENORPHINE HYDROCHLORIDE
     Dosage: 2 DOSAGE UNITS, ONCE, IN THE ARM
     Route: 059

REACTIONS (5)
  - Drug abuse [None]
  - Intentional removal of drug delivery system by patient [Not Recovered/Not Resolved]
  - Incorrect product administration duration [Not Recovered/Not Resolved]
  - Drug withdrawal syndrome [Unknown]
  - Drug screen positive [None]

NARRATIVE: CASE EVENT DATE: 20190125
